FAERS Safety Report 5145796-9 (Version None)
Quarter: 2006Q4

REPORT INFORMATION
  Report Type: 
  Country: None (occurrence: None)
  Receive Date: 20061108
  Receipt Date: 20061031
  Transmission Date: 20070319
  Serious: Yes (Other)
  Sender: FDA-Public Use
  Company Number: CA-SP-2006-02900

PATIENT
  Age: 54 Year
  Sex: Female

DRUGS (1)
  1. TUBERSOL [Suspect]
     Indication: TUBERCULIN TEST
     Route: 065

REACTIONS (9)
  - COUGH [None]
  - DIZZINESS [None]
  - DYSPHONIA [None]
  - DYSPNOEA [None]
  - GLOSSODYNIA [None]
  - PRURITUS [None]
  - RASH [None]
  - SNEEZING [None]
  - URTICARIA [None]
